FAERS Safety Report 11010793 (Version 1)
Quarter: 2015Q2

REPORT INFORMATION
  Report Type: Report from Study
  Country: US (occurrence: US)
  Receive Date: 20150410
  Receipt Date: 20150410
  Transmission Date: 20150821
  Serious: Yes (Hospitalization, Other)
  Sender: FDA-Public Use
  Company Number: US-BAYER-2015-014694

PATIENT
  Age: 62 Year
  Sex: Female

DRUGS (1)
  1. STIVARGA [Suspect]
     Active Substance: REGORAFENIB
     Indication: COLORECTAL CANCER
     Dosage: 120 MG, DAILY
     Route: 048
     Dates: start: 20150125, end: 20150330

REACTIONS (7)
  - Blood pressure increased [None]
  - Dysphonia [None]
  - Enterocolitis infectious [None]
  - Paraesthesia [None]
  - Intestinal perforation [None]
  - White blood cell count increased [None]
  - Malaise [None]

NARRATIVE: CASE EVENT DATE: 201501
